FAERS Safety Report 6123983-0 (Version None)
Quarter: 2009Q1

REPORT INFORMATION
  Report Type: 
  Country: None (occurrence: None)
  Receive Date: 20090318
  Receipt Date: 20090318
  Transmission Date: 20090719
  Serious: No
  Sender: FDA-Public Use
  Company Number: None

PATIENT
  Sex: Female

DRUGS (1)
  1. METOPROLOL TARTRATE [Suspect]
     Dosage: 50MG ONCE DAILY PO
     Route: 048
     Dates: start: 20090310, end: 20090316

REACTIONS (1)
  - HAEMORRHAGE [None]
